FAERS Safety Report 18348776 (Version 2)
Quarter: 2022Q2

REPORT INFORMATION
  Report Type: Spontaneous
  Country: US (occurrence: US)
  Receive Date: 20201006
  Receipt Date: 20220517
  Transmission Date: 20220720
  Serious: Yes (Death, Other)
  Sender: FDA-Public Use
  Company Number: US-SAARTEMIS-SAC202009300170

PATIENT
  Age: 65 Year
  Sex: Female

DRUGS (1)
  1. ZANTAC [Suspect]
     Active Substance: RANITIDINE HYDROCHLORIDE
     Indication: Gastrooesophageal reflux disease
     Dosage: 150 MG, QD
     Dates: start: 201601, end: 201901

REACTIONS (3)
  - Renal cancer stage IV [Fatal]
  - Lung cancer metastatic [Fatal]
  - Bone cancer metastatic [Fatal]

NARRATIVE: CASE EVENT DATE: 20190919
